FAERS Safety Report 10726639 (Version 2)
Quarter: 2015Q1

REPORT INFORMATION
  Report Type: Spontaneous
  Country: BR (occurrence: BR)
  Receive Date: 20150121
  Receipt Date: 20150203
  Transmission Date: 20150721
  Serious: Yes (Other)
  Sender: FDA-Public Use
  Company Number: BR-NAPPMUNDI-GBR-2015-0025029

PATIENT
  Age: 52 Year
  Sex: Female

DRUGS (2)
  1. HORMONES [Concomitant]
     Active Substance: UNSPECIFIED INGREDIENT
     Dosage: 1 APPLIC, DAILY
     Route: 061
  2. OXYCONTIN [Suspect]
     Active Substance: OXYCODONE HYDROCHLORIDE
     Indication: BACK PAIN
     Dosage: 10 MG, Q12H
     Route: 048
     Dates: start: 20150113

REACTIONS (7)
  - Vomiting [Not Recovered/Not Resolved]
  - Dyspnoea [Not Recovered/Not Resolved]
  - Nausea [Not Recovered/Not Resolved]
  - Malaise [Not Recovered/Not Resolved]
  - Hypotension [Not Recovered/Not Resolved]
  - Chills [Not Recovered/Not Resolved]
  - Heart rate abnormal [Not Recovered/Not Resolved]

NARRATIVE: CASE EVENT DATE: 20150114
